FAERS Safety Report 8481998-1 (Version None)
Quarter: 2012Q3

REPORT INFORMATION
  Report Type: 
  Country: None (occurrence: None)
  Receive Date: 20120702
  Receipt Date: 20120626
  Transmission Date: 20120928
  Serious: Yes (Hospitalization)
  Sender: FDA-Public Use
  Company Number: PHFR2012GB003741

PATIENT

DRUGS (1)
  1. ILARIS [Suspect]

REACTIONS (1)
  - LOWER RESPIRATORY TRACT INFECTION [None]
